FAERS Safety Report 5528963-1 (Version None)
Quarter: 2007Q4

REPORT INFORMATION
  Report Type: 
  Country: None (occurrence: None)
  Receive Date: 20071109
  Receipt Date: 20070305
  Transmission Date: 20080405
  Serious: Yes (Hospitalization, Other)
  Sender: FDA-Public Use
  Company Number: PHEH2004US07658

PATIENT
  Sex: Female

DRUGS (11)
  1. ESTRADERM [Suspect]
     Indication: HORMONE REPLACEMENT THERAPY
     Dosage: 0.1 MG, 2 TIMES WEEKLY, TRANSDERMAL
     Route: 062
     Dates: end: 20010101
  2. PREMARIN [Suspect]
     Indication: HORMONE REPLACEMENT THERAPY
     Dosage: 0.625 MG, QD, ORAL
     Route: 048
     Dates: start: 19630101, end: 20010101
  3. PREDNISONE [Concomitant]
  4. GLYBURIDE [Concomitant]
  5. ZOCOR [Concomitant]
  6. CLIDINIUM (CLIDINIUM) [Concomitant]
  7. ALTACE [Concomitant]
  8. DIAZEPAM [Concomitant]
  9. NORTRIPTYLINE HCL [Concomitant]
  10. SYNTHROID [Concomitant]
  11. TOPROL-XL [Concomitant]

REACTIONS (19)
  - ANXIETY [None]
  - ARTERIAL GRAFT [None]
  - BIOPSY BREAST [None]
  - BREAST CANCER [None]
  - BREAST CANCER STAGE II [None]
  - BREAST MASS [None]
  - BREAST MICROCALCIFICATION [None]
  - CARDIOMEGALY [None]
  - CHEST PAIN [None]
  - CORONARY ARTERY OCCLUSION [None]
  - EMOTIONAL DISTRESS [None]
  - FIBROCYSTIC BREAST DISEASE [None]
  - INJURY [None]
  - LYMPH NODE CANCER METASTATIC [None]
  - MAMMOGRAM ABNORMAL [None]
  - MODIFIED RADICAL MASTECTOMY [None]
  - PLEURAL EFFUSION [None]
  - SCAR [None]
  - VASCULAR GRAFT [None]
